FAERS Safety Report 4528785-4 (Version None)
Quarter: 2004Q4

REPORT INFORMATION
  Report Type: 
  Country: None (occurrence: None)
  Receive Date: 20041214
  Receipt Date: 20041203
  Transmission Date: 20050328
  Serious: Yes (Hospitalization)
  Sender: FDA-Public Use
  Company Number: 209274

PATIENT
  Age: 49 Year
  Sex: Male

DRUGS (17)
  1. MABTHERA (RITUXIMAB) CONC FOR  SOLUTION FOR INFUSION [Suspect]
     Indication: LYMPHOMA
     Dosage: 730 MG, 1/WEEK, INTRAVENOUS
     Route: 042
     Dates: start: 20040906, end: 20040906
  2. MABTHERA (RITUXIMAB) CONC FOR  SOLUTION FOR INFUSION [Suspect]
     Indication: LYMPHOMA
     Dosage: 730 MG, 1/WEEK, INTRAVENOUS
     Route: 042
     Dates: end: 20040913
  3. MABTHERA (RITUXIMAB) CONC FOR  SOLUTION FOR INFUSION [Suspect]
     Indication: LYMPHOMA
     Dosage: 730 MG, 1/WEEK, INTRAVENOUS
     Route: 042
     Dates: start: 20041006
  4. ESOMEPRAZOLE (ESOMEPRAZOLE MAGNESIUM) [Concomitant]
  5. PINEX FORTE (ACETAMINOPHEN, CODEINE PHOSPHATE) [Concomitant]
  6. CARISOPRODOL [Concomitant]
  7. AMOXICILLIN [Concomitant]
  8. CIPROFLOXACINE CHLORHYDRATE (CIPROFLOXACIN HYDROCHLORIDE) [Concomitant]
  9. HEPARIN [Concomitant]
  10. DALTEPARIN (DALTEPARIN SODIUM [Concomitant]
  11. HYDROCORTISONE [Concomitant]
  12. ACTRAPID (INSULIN) [Concomitant]
  13. CLINDAMYCIN (CLINDAMYCIN) [Concomitant]
  14. ERYTHROMYCIN [Concomitant]
  15. OMEPRAZOLE [Concomitant]
  16. MALEATE (ENALAPRIL MALEATE) [Concomitant]
  17. CEFOTAXIME SODIUM [Concomitant]

REACTIONS (28)
  - ALANINE AMINOTRANSFERASE INCREASED [None]
  - ASPARTATE AMINOTRANSFERASE INCREASED [None]
  - BLOOD CREATININE INCREASED [None]
  - BLOOD UREA INCREASED [None]
  - CARDIAC FAILURE [None]
  - CHEST DISCOMFORT [None]
  - CHEST PAIN [None]
  - COUGH [None]
  - DIASTOLIC DYSFUNCTION [None]
  - DILATATION VENTRICULAR [None]
  - DYSURIA [None]
  - ERYSIPELAS [None]
  - ERYTHEMA [None]
  - EXANTHEM [None]
  - HAEMATURIA [None]
  - HYPERHIDROSIS [None]
  - INFECTION [None]
  - INFUSION RELATED REACTION [None]
  - LUNG INFILTRATION [None]
  - LYMPHOCYTE COUNT DECREASED [None]
  - NEURITIS [None]
  - OESOPHAGEAL CANDIDIASIS [None]
  - PNEUMONIA [None]
  - PYREXIA [None]
  - SEPSIS [None]
  - SEPTIC SHOCK [None]
  - SKIN INDURATION [None]
  - URETHRITIS [None]
